FAERS Safety Report 16228387 (Version 1)
Quarter: 2019Q2

REPORT INFORMATION
  Report Type: Spontaneous
  Country: US (occurrence: US)
  Receive Date: 20190422
  Receipt Date: 20190422
  Transmission Date: 20190711
  Serious: Yes (Hospitalization)
  Sender: FDA-Public Use
  Company Number: None

PATIENT
  Age: 77 Year
  Sex: Male

DRUGS (9)
  1. METOPROLOL 25MG [Concomitant]
     Active Substance: METOPROLOL
  2. CAPECITABINE. [Suspect]
     Active Substance: CAPECITABINE
     Indication: NEOPLASM MALIGNANT
     Route: 048
     Dates: start: 20190301, end: 20190410
  3. PLAVIX [Concomitant]
     Active Substance: CLOPIDOGREL BISULFATE
  4. SIMVASTATIN 20MG [Concomitant]
     Active Substance: SIMVASTATIN
  5. COMPAZINE 10MG [Concomitant]
  6. ZOFRAN 4MG [Concomitant]
  7. AMLODIPINE [Concomitant]
     Active Substance: AMLODIPINE BESYLATE
  8. OMEPRAZOLE 20MG [Concomitant]
     Active Substance: OMEPRAZOLE
  9. CILOSTAZOL 100MG [Concomitant]
     Active Substance: CILOSTAZOL

REACTIONS (2)
  - Dehydration [None]
  - Diarrhoea [None]

NARRATIVE: CASE EVENT DATE: 20190401
